FAERS Safety Report 8771055 (Version 1)
Quarter: 2012Q4

REPORT INFORMATION
  Report Type: 
  Country: US (occurrence: US)
  Receive Date: 20120906
  Receipt Date: 20120906
  Transmission Date: 20130627
  Serious: Yes (Hospitalization, Other)
  Sender: FDA-Public Use
  Company Number: CHPA2012US019062

PATIENT
  Age: 52 Year
  Sex: Female

DRUGS (5)
  1. CONTROL PLP [Suspect]
     Indication: SMOKING CESSATION THERAPY
     Dosage: 21 mg, QD
     Route: 062
     Dates: start: 20120117, end: 201202
  2. CONTROL PLP [Suspect]
     Dosage: 14 mg, QD
     Route: 062
     Dates: start: 201202, end: 201202
  3. CONTROL PLP [Suspect]
     Dosage: 21 mg, QD
     Route: 062
     Dates: start: 20120828
  4. ATENOLOL [Concomitant]
     Dosage: 50 mg, QD
     Route: 048
  5. KLONOPIN [Concomitant]
     Indication: ANXIETY
     Dosage: 1 mg, 3.5 times per day
     Route: 048

REACTIONS (12)
  - Emphysema [Not Recovered/Not Resolved]
  - Concomitant disease aggravated [Not Recovered/Not Resolved]
  - Dyspnoea [Not Recovered/Not Resolved]
  - Wheezing [Not Recovered/Not Resolved]
  - Lung infection [Not Recovered/Not Resolved]
  - Cough [Not Recovered/Not Resolved]
  - Blood pressure decreased [Recovered/Resolved]
  - Vascular headache [Recovered/Resolved]
  - Feeling abnormal [Not Recovered/Not Resolved]
  - Treatment noncompliance [Unknown]
  - Overdose [Unknown]
  - Inappropriate schedule of drug administration [Unknown]
